FAERS Safety Report 8382404-8 (Version None)
Quarter: 2012Q2

REPORT INFORMATION
  Report Type: 
  Country: None (occurrence: None)
  Receive Date: 20120524
  Receipt Date: 20120517
  Transmission Date: 20120825
  Serious: Yes (Death, Hospitalization)
  Sender: FDA-Public Use
  Company Number: PHHY2012JP033814

PATIENT
  Age: 81 Year
  Sex: Male

DRUGS (3)
  1. BUPRENORPHINE [Concomitant]
     Dosage: 5 MG, TID
     Dates: start: 20110411, end: 20120418
  2. LANSOPRAZOLE [Concomitant]
     Dosage: 15 MG, UNK
     Dates: start: 20111001, end: 20120418
  3. EXELON [Suspect]
     Indication: DEMENTIA
     Dosage: 4.5 MG, UNK
     Route: 062
     Dates: start: 20120411, end: 20120418

REACTIONS (3)
  - RENAL FAILURE [None]
  - RENAL FAILURE ACUTE [None]
  - BLOOD CREATININE INCREASED [None]
